FAERS Safety Report 8769431 (Version 2)
Quarter: 2012Q4

REPORT INFORMATION
  Report Type: 
  Country: US (occurrence: US)
  Receive Date: 20120905
  Receipt Date: 20120905
  Transmission Date: 20130627
  Serious: No
  Sender: FDA-Public Use
  Company Number: US-MYLANLABS-2012S1012182

PATIENT
  Age: 66 Year
  Sex: Female

DRUGS (2)
  1. SPIRONOLACTONE [Suspect]
     Indication: FLUID RETENTION
     Dates: start: 200806
  2. CLINDAMYCIN [Concomitant]

REACTIONS (2)
  - Rash [Recovered/Resolved]
  - Pruritus [Recovered/Resolved]
